FAERS Safety Report 4654205-5 (Version None)
Quarter: 2005Q2

REPORT INFORMATION
  Report Type: 
  Country: None (occurrence: None)
  Receive Date: 20050404
  Receipt Date: 20041214
  Transmission Date: 20051028
  Serious: No
  Sender: FDA-Public Use
  Company Number: USA041286128

PATIENT
  Age: 48 Year
  Sex: Male
  Weight: 91 kg

DRUGS (3)
  1. CYMBALTA [Suspect]
     Indication: FIBROMYALGIA
     Dosage: 60 MG/1 IN THE MORNING
     Dates: start: 20040101
  2. ALEVE [Concomitant]
  3. AMBIEN [Concomitant]

REACTIONS (4)
  - COLD SWEAT [None]
  - DIZZINESS [None]
  - NAUSEA [None]
  - YAWNING [None]
